FAERS Safety Report 7277300-3 (Version None)
Quarter: 2010Q4

REPORT INFORMATION
  Report Type: 
  Country: None (occurrence: None)
  Receive Date: 20101201
  Receipt Date: 20100928
  Transmission Date: 20110411
  Serious: Yes (Other)
  Sender: FDA-Public Use
  Company Number: 315606

PATIENT
  Age: 55 Year
  Sex: Male
  Weight: 86.6 kg

DRUGS (8)
  1. NOVOLOG MIX 70/30 [Suspect]
     Indication: TYPE 1 DIABETES MELLITUS
     Dosage: 30 UNITS, TID, SUBCUTANEOUS
     Route: 058
     Dates: start: 20100301
  2. NOVOLOG [Suspect]
     Indication: TYPE 1 DIABETES MELLITUS
     Dosage: SLIDING SCALE, SUBCUTANEOUS
     Route: 058
  3. EXFORGE /01634301/ (AMLODIPINE, VALSARTAN) [Concomitant]
  4. LIPITOR [Concomitant]
  5. METHIMAZOLE [Concomitant]
  6. PAROXETINE HCL [Concomitant]
  7. CETIRIZINE (CETIRIZINE) [Concomitant]
  8. SYMBICORT [Concomitant]

REACTIONS (2)
  - BLOOD GLUCOSE DECREASED [None]
  - BLOOD GLUCOSE INCREASED [None]
